FAERS Safety Report 11936133 (Version 3)
Quarter: 2016Q1

REPORT INFORMATION
  Report Type: Report from Study
  Country: US (occurrence: US)
  Receive Date: 20160121
  Receipt Date: 20160219
  Transmission Date: 20160526
  Serious: Yes (Other)
  Sender: FDA-Public Use
  Company Number: US-AMGEN-USASL2015137363

PATIENT
  Age: 60 Year
  Sex: Male

DRUGS (3)
  1. KYPROLIS [Suspect]
     Active Substance: CARFILZOMIB
     Dosage: 50 SOMETHING, ON TWO CONSECUTIVE DAYS A WEEK FOR 3 WEEKS WITH 1 WEEK OFF
     Route: 065
     Dates: end: 20160119
  2. KYPROLIS [Suspect]
     Active Substance: CARFILZOMIB
     Dosage: 2X/WEEK FOR 3 ON AND 1 OFF.
     Route: 065
  3. KYPROLIS [Suspect]
     Active Substance: CARFILZOMIB
     Indication: PRODUCT USED FOR UNKNOWN INDICATION
     Dosage: 56 MG/M2, 2X/WEEK FOR 3 WEEKS AND 1 OFF
     Route: 065

REACTIONS (6)
  - Back pain [Unknown]
  - Pain [Unknown]
  - Diarrhoea [Unknown]
  - Disease progression [Unknown]
  - Abasia [Unknown]
  - Off label use [Unknown]

NARRATIVE: CASE EVENT DATE: 201601
